FAERS Safety Report 10445924 (Version 1)
Quarter: 2014Q3

REPORT INFORMATION
  Report Type: Report from Study
  Country: MX (occurrence: MX)
  Receive Date: 20140910
  Receipt Date: 20140910
  Transmission Date: 20150326
  Serious: Yes (Hospitalization, Other)
  Sender: FDA-Public Use
  Company Number: PHHY2014MX112220

PATIENT
  Age: 96 Year
  Sex: Female

DRUGS (5)
  1. RANITIDINE [Concomitant]
     Active Substance: RANITIDINE\RANITIDINE HYDROCHLORIDE
     Dosage: UNK UKN, UNK (2 SPOONFUL IN EVERY 12 HOURS)
     Dates: start: 20140822
  2. EXELON PATCH [Suspect]
     Active Substance: RIVASTIGMINE
     Indication: DEMENTIA ALZHEIMER^S TYPE
     Dosage: 1 DF, UNK (9.5MG/10CM2) DAILY
     Route: 062
  3. METICORTEN [Concomitant]
     Active Substance: PREDNISONE
     Dosage: 1 DF, DAILY
     Dates: start: 20140822
  4. BROMAZEPAM [Concomitant]
     Active Substance: BROMAZEPAM
     Dosage: UNK UKN, UNK (3 SPOONFUL DAILY)
     Dates: start: 2013
  5. DAKTARIN [Concomitant]
     Active Substance: MICONAZOLE NITRATE
     Dosage: 3 DF, DAILY
     Dates: start: 2014

REACTIONS (2)
  - Pneumonia [Not Recovered/Not Resolved]
  - Medical device complication [Unknown]

NARRATIVE: CASE EVENT DATE: 20140816
